FAERS Safety Report 8441522-6 (Version None)
Quarter: 2012Q2

REPORT INFORMATION
  Report Type: 
  Country: None (occurrence: None)
  Receive Date: 20120615
  Receipt Date: 20120612
  Transmission Date: 20120825
  Serious: Yes (Other)
  Sender: FDA-Public Use
  Company Number: US-PFIZER INC-2012141673

PATIENT
  Sex: Female
  Weight: 53.968 kg

DRUGS (4)
  1. GLUCOPHAGE [Concomitant]
     Dosage: UNK
  2. PROZAC [Concomitant]
     Dosage: UNK
  3. LIPITOR [Suspect]
     Indication: BLOOD CHOLESTEROL INCREASED
     Dosage: 10 MG, 1X/DAY
     Route: 048
     Dates: start: 20110401, end: 20110601
  4. SEROQUEL [Concomitant]
     Dosage: UNK

REACTIONS (5)
  - SCOLIOSIS [None]
  - INTERVERTEBRAL DISC DEGENERATION [None]
  - BACK DISORDER [None]
  - HEPATIC ENZYME INCREASED [None]
  - MUSCLE SPASMS [None]
